FAERS Safety Report 23803227 (Version 5)
Quarter: 2025Q4

REPORT INFORMATION
  Report Type: Spontaneous
  Country: CA (occurrence: CA)
  Receive Date: 20240501
  Receipt Date: 20251118
  Transmission Date: 20260119
  Serious: Yes (Hospitalization, Other)
  Sender: PFIZER
  Company Number: CA-PFIZER INC-PV202300184749

PATIENT
  Age: 28 Year
  Sex: Female

DRUGS (5)
  1. RAPAMUNE [Suspect]
     Active Substance: SIROLIMUS
     Indication: Angiosarcoma
     Dosage: 5 MG, DAILY
     Route: 048
     Dates: start: 20240102, end: 202403
  2. RAPAMUNE [Suspect]
     Active Substance: SIROLIMUS
     Dosage: 3 MG, DAILY
     Route: 048
  3. RAPAMUNE [Suspect]
     Active Substance: SIROLIMUS
     Dosage: 6 MG, DAILY
     Route: 048
  4. RAPAMUNE [Suspect]
     Active Substance: SIROLIMUS
     Dosage: 8 MG, DAILY
     Route: 048
  5. RAPAMUNE [Suspect]
     Active Substance: SIROLIMUS
     Dosage: 10 MG, DAILY
     Route: 048

REACTIONS (13)
  - Colitis ulcerative [Recovering/Resolving]
  - Clostridium difficile infection [Unknown]
  - Abnormal uterine bleeding [Not Recovered/Not Resolved]
  - Crohn^s disease [Unknown]
  - Upper respiratory tract infection [Not Recovered/Not Resolved]
  - Ear discomfort [Not Recovered/Not Resolved]
  - Rash [Not Recovered/Not Resolved]
  - Skin hyperpigmentation [Unknown]
  - Skin discolouration [Unknown]
  - Crepitations [Unknown]
  - Fistula [Unknown]
  - Off label use [Unknown]
  - Drug effective for unapproved indication [Unknown]

NARRATIVE: CASE EVENT DATE: 20240101
